FAERS Safety Report 20538789 (Version 1)
Quarter: 2022Q1

REPORT INFORMATION
  Report Type: Spontaneous
  Country: CA (occurrence: CA)
  Receive Date: 20220302
  Receipt Date: 20220302
  Transmission Date: 20220424
  Serious: Yes (Hospitalization, Other)
  Sender: FDA-Public Use
  Company Number: CA-JNJFOC-20210921520

PATIENT
  Age: 67 Year
  Sex: Female

DRUGS (2)
  1. IMODIUM [Suspect]
     Active Substance: LOPERAMIDE HYDROCHLORIDE
     Indication: Product used for unknown indication
     Route: 065
  2. RENFLEXIS [Suspect]
     Active Substance: INFLIXIMAB-ABDA
     Indication: Crohn^s disease
     Route: 042

REACTIONS (29)
  - Faecaloma [Unknown]
  - Nephrolithiasis [Unknown]
  - Thrombosis [Unknown]
  - Postoperative wound infection [Unknown]
  - Crohn^s disease [Unknown]
  - Alanine aminotransferase increased [Unknown]
  - Anion gap decreased [Unknown]
  - Aspartate aminotransferase increased [Unknown]
  - Asthenia [Unknown]
  - Blood bicarbonate increased [Unknown]
  - Blood bilirubin increased [Unknown]
  - Blood pressure decreased [Unknown]
  - Dehydration [Unknown]
  - Ear infection [Unknown]
  - Epistaxis [Unknown]
  - Fungal infection [Unknown]
  - General physical health deterioration [Unknown]
  - Ill-defined disorder [Unknown]
  - Inflammation [Unknown]
  - Mucous stools [Unknown]
  - Platelet count decreased [Unknown]
  - Polyp [Unknown]
  - Sacroiliitis [Unknown]
  - Vaginal haemorrhage [Unknown]
  - Blood potassium decreased [Unknown]
  - Drug ineffective [Unknown]
  - Therapeutic response shortened [Unknown]
  - Pruritus [Unknown]
  - Abdominal distension [Unknown]
